FAERS Safety Report 4454992-5 (Version None)
Quarter: 2004Q3

REPORT INFORMATION
  Report Type: 
  Country: None (occurrence: None)
  Receive Date: 20040824
  Receipt Date: 20040602
  Transmission Date: 20050211
  Serious: No
  Sender: FDA-Public Use
  Company Number: SU-2004-002425

PATIENT
  Age: 76 Year
  Sex: Female
  Weight: 63.5036 kg

DRUGS (1)
  1. BENICAR [Suspect]
     Indication: HYPERTENSION
     Dosage: 40 MG QD PO
     Route: 048
     Dates: start: 20040513

REACTIONS (4)
  - DYSPEPSIA [None]
  - ERUCTATION [None]
  - FATIGUE [None]
  - FLATULENCE [None]
